FAERS Safety Report 23703802 (Version 1)
Quarter: 2024Q2

REPORT INFORMATION
  Report Type: Other
  Country: US (occurrence: US)
  Receive Date: 20240403
  Receipt Date: 20240403
  Transmission Date: 20240715
  Serious: Yes (Other)
  Sender: FDA-Public Use
  Company Number: US-Fagron Sterile Services-2155204

PATIENT
  Age: 51 Year
  Sex: Male
  Weight: 78.8 kg

DRUGS (1)
  1. ARGININE\LYSINE [Suspect]
     Active Substance: ARGININE\LYSINE

REACTIONS (1)
  - Adverse reaction [Recovered/Resolved]
